FAERS Safety Report 5938252-9 (Version None)
Quarter: 2008Q4

REPORT INFORMATION
  Report Type: 
  Country: None (occurrence: None)
  Receive Date: 20081031
  Receipt Date: 20081024
  Transmission Date: 20090506
  Serious: Yes (Other)
  Sender: FDA-Public Use
  Company Number: AU-PFIZER INC-2008090842

PATIENT
  Age: 50 Year
  Sex: Female

DRUGS (1)
  1. CHAMPIX [Suspect]

REACTIONS (3)
  - DEPRESSION [None]
  - REGRESSIVE BEHAVIOUR [None]
  - SOCIAL AVOIDANT BEHAVIOUR [None]
